FAERS Safety Report 9309955 (Version 1)
Quarter: 2013Q2

REPORT INFORMATION
  Report Type: Spontaneous
  Country: US (occurrence: US)
  Receive Date: 20130527
  Receipt Date: 20130527
  Transmission Date: 20140414
  Serious: No
  Sender: FDA-Public Use
  Company Number: US-009507513-1305USA010587

PATIENT
  Age: 64 Year
  Sex: Female

DRUGS (1)
  1. NASONEX [Suspect]
     Indication: SINUSITIS
     Dosage: TWO SPRAYS IN EACH NOSTRIL, ONCE DAILY
     Route: 045
     Dates: start: 20130510, end: 20130516

REACTIONS (3)
  - Dizziness [Recovering/Resolving]
  - Nasal discomfort [Recovering/Resolving]
  - Off label use [Unknown]
